FAERS Safety Report 4277279-2 (Version None)
Quarter: 2004Q1

REPORT INFORMATION
  Report Type: 
  Country: None (occurrence: None)
  Receive Date: 20040120
  Receipt Date: 20040109
  Transmission Date: 20041129
  Serious: Yes (Hospitalization)
  Sender: FDA-Public Use
  Company Number: US-JNJFOC-20030904536

PATIENT
  Age: 84 Year
  Sex: Male
  Weight: 60.3284 kg

DRUGS (9)
  1. REMICADE [Suspect]
     Indication: RHEUMATOID ARTHRITIS
     Dosage: INTRAVENOUS, 200 MG, INTRAVENOUS
     Route: 042
     Dates: start: 20020101
  2. REMICADE [Suspect]
     Indication: RHEUMATOID ARTHRITIS
     Dosage: INTRAVENOUS, 200 MG, INTRAVENOUS
     Route: 042
     Dates: start: 20030601
  3. COUMADIN [Concomitant]
  4. ACTOS [Concomitant]
  5. GLUCOTROL XL [Concomitant]
  6. PREDNISONE [Concomitant]
  7. METHOTREXATE [Concomitant]
  8. ALTACE [Concomitant]
  9. LIPITOR (ATORVASATATIN) [Concomitant]

REACTIONS (11)
  - BENIGN PROSTATIC HYPERPLASIA [None]
  - CHILLS [None]
  - DIARRHOEA [None]
  - DYSPNOEA EXERTIONAL [None]
  - LUNG DISORDER [None]
  - NAUSEA [None]
  - POST PROCEDURAL COMPLICATION [None]
  - PYREXIA [None]
  - RESPIRATORY FAILURE [None]
  - URINARY RETENTION [None]
  - VOMITING [None]
